FAERS Safety Report 12136994 (Version 1)
Quarter: 2016Q1

REPORT INFORMATION
  Report Type: Spontaneous
  Country: US (occurrence: US)
  Receive Date: 20160302
  Receipt Date: 20160302
  Transmission Date: 20160526
  Serious: No
  Sender: FDA-Public Use
  Company Number: US-PERRIGO-15US008873

PATIENT
  Sex: Female

DRUGS (1)
  1. GOOD NEIGHBOR PHARMACY ANTI DIARRHEAL [Suspect]
     Active Substance: LOPERAMIDE HYDROCHLORIDE
     Indication: DIARRHOEA
     Dosage: 2 MG, BID TO TID
     Route: 048
     Dates: start: 201501

REACTIONS (7)
  - Inappropriate schedule of drug administration [Not Recovered/Not Resolved]
  - Incorrect dose administered [Not Recovered/Not Resolved]
  - Blood urine present [Unknown]
  - Abdominal mass [Unknown]
  - Incorrect drug administration duration [Not Recovered/Not Resolved]
  - Urinary tract infection [Unknown]
  - Breast mass [Unknown]

NARRATIVE: CASE EVENT DATE: 201501
